FAERS Safety Report 24919880 (Version 1)
Quarter: 2025Q1

REPORT INFORMATION
  Report Type: Report from Study
  Country: US (occurrence: US)
  Receive Date: 20250204
  Receipt Date: 20250204
  Transmission Date: 20250409
  Serious: No
  Sender: EXELIXIS
  Company Number: US-EXELIXIS-CABO-24072437

PATIENT
  Age: 65 Year
  Sex: Male

DRUGS (3)
  1. CABOMETYX [Suspect]
     Active Substance: CABOZANTINIB S-MALATE
     Indication: Renal cancer
     Dosage: 40 MG, QD
     Route: 048
  2. KEYTRUDA [Suspect]
     Active Substance: PEMBROLIZUMAB
     Indication: Renal cancer
     Dosage: UNK, Q3WEEKS
  3. SALINE [Suspect]
     Active Substance: SODIUM CHLORIDE
     Indication: Product used for unknown indication

REACTIONS (15)
  - Seasonal allergy [Recovering/Resolving]
  - Gastrooesophageal reflux disease [Recovering/Resolving]
  - Blood pressure increased [Recovering/Resolving]
  - Erythema [Recovering/Resolving]
  - Hepatic enzyme increased [Unknown]
  - Taste disorder [Unknown]
  - Dyspepsia [Recovering/Resolving]
  - Fatigue [Recovering/Resolving]
  - Stomatitis [Recovering/Resolving]
  - Pain in extremity [Unknown]
  - Oedema [Unknown]
  - Abdominal discomfort [Recovering/Resolving]
  - Peripheral swelling [Recovering/Resolving]
  - Cough [Recovering/Resolving]
  - Vomiting [Recovering/Resolving]

NARRATIVE: CASE EVENT DATE: 20240129
